FAERS Safety Report 10508155 (Version 4)
Quarter: 2024Q2

REPORT INFORMATION
  Report Type: Report from Study
  Country: CA (occurrence: CA)
  Receive Date: 20141009
  Receipt Date: 20240625
  Transmission Date: 20240715
  Serious: No
  Sender: FDA-Public Use
  Company Number: CA-JNJFOC-20140109950

PATIENT
  Age: 53 Year
  Sex: Female

DRUGS (5)
  1. STELARA [Suspect]
     Active Substance: USTEKINUMAB
     Indication: Psoriasis
     Route: 058
     Dates: start: 20100602, end: 20140902
  2. STELARA [Suspect]
     Active Substance: USTEKINUMAB
     Route: 058
     Dates: start: 20141210
  3. STELARA [Suspect]
     Active Substance: USTEKINUMAB
     Route: 058
     Dates: start: 20100602, end: 20140902
  4. STELARA [Suspect]
     Active Substance: USTEKINUMAB
     Route: 058
     Dates: start: 20141210
  5. REMICADE [Suspect]
     Active Substance: INFLIXIMAB
     Indication: Psoriasis
     Route: 041
     Dates: start: 20091124, end: 20100309

REACTIONS (1)
  - Cholecystitis [Unknown]

NARRATIVE: CASE EVENT DATE: 20131115
